FAERS Safety Report 12254468 (Version 1)
Quarter: 2016Q2

REPORT INFORMATION
  Report Type: Other
  Country: DK (occurrence: DK)
  Receive Date: 20160411
  Receipt Date: 20160411
  Transmission Date: 20160815
  Serious: Yes (Other)
  Sender: FDA-Public Use
  Company Number: DK-MYLANLABS-2016M1014247

PATIENT

DRUGS (2)
  1. LETROZOLE. [Concomitant]
     Active Substance: LETROZOLE
     Indication: HER-2 POSITIVE BREAST CANCER
     Dosage: UNK
  2. TAMOXIFEN MYLAN [Suspect]
     Active Substance: TAMOXIFEN
     Indication: HER-2 POSITIVE BREAST CANCER
     Dosage: UNK
     Dates: start: 20120110

REACTIONS (22)
  - Pelvic venous thrombosis [Unknown]
  - Rash [Unknown]
  - Fatigue [Unknown]
  - Pulmonary pain [Unknown]
  - Memory impairment [Unknown]
  - Pain in extremity [Unknown]
  - Deep vein thrombosis [Unknown]
  - Alopecia [Unknown]
  - Cough [Unknown]
  - Peripheral swelling [Unknown]
  - Paraesthesia [Unknown]
  - Lymphoedema [Unknown]
  - Mucous membrane disorder [Unknown]
  - Sensory disturbance [Unknown]
  - Nausea [Unknown]
  - Dysphagia [Unknown]
  - Dyspnoea [Unknown]
  - Nail disorder [Unknown]
  - Muscle spasms [Unknown]
  - Dizziness [Unknown]
  - Activities of daily living impaired [Unknown]
  - Haematoma [Unknown]

NARRATIVE: CASE EVENT DATE: 201106
